FAERS Safety Report 25603307 (Version 1)
Quarter: 2025Q3

REPORT INFORMATION
  Report Type: Spontaneous
  Country: US (occurrence: US)
  Receive Date: 20250724
  Receipt Date: 20250724
  Transmission Date: 20251020
  Serious: No
  Sender: AMPHASTAR
  Company Number: US-Amphastar Pharmaceuticals, Inc.-2181162

PATIENT

DRUGS (4)
  1. GLUCAGON [Suspect]
     Active Substance: GLUCAGON
  2. GLUCAGON [Suspect]
     Active Substance: GLUCAGON
  3. GLUCAGON [Suspect]
     Active Substance: GLUCAGON
  4. GLUCAGON [Suspect]
     Active Substance: GLUCAGON

REACTIONS (1)
  - No adverse event [Recovered/Resolved]
